FAERS Safety Report 5526490-9 (Version None)
Quarter: 2007Q4

REPORT INFORMATION
  Report Type: 
  Country: None (occurrence: None)
  Receive Date: 20071121
  Receipt Date: 20071121
  Transmission Date: 20080405
  Serious: No
  Sender: FDA-Public Use
  Company Number: None

PATIENT
  Age: 36 Year
  Sex: Female
  Weight: 68.0396 kg

DRUGS (2)
  1. ZICAM COLD REMEDY, NASAL GEL   ZINCUM GLUCONICUM 2X  ZICAM LLC, MATRIX [Suspect]
     Indication: NASOPHARYNGITIS
     Dosage: 1 SPRAY  ONCE NASAL
     Route: 045
     Dates: start: 20071120, end: 20071120
  2. ZICAM COLD REMEDY, NASAL GEL   ZINCUM GLUCONICUM 2X  ZICAM LLC, MATRIX [Suspect]
     Indication: SNEEZING
     Dosage: 1 SPRAY  ONCE NASAL
     Route: 045
     Dates: start: 20071120, end: 20071120

REACTIONS (4)
  - BURNING SENSATION [None]
  - HYPOAESTHESIA ORAL [None]
  - NASAL DISCOMFORT [None]
  - SINUS DISORDER [None]
